FAERS Safety Report 12742780 (Version 2)
Quarter: 2017Q1

REPORT INFORMATION
  Report Type: Spontaneous
  Country: IT (occurrence: IT)
  Receive Date: 20160914
  Receipt Date: 20170125
  Transmission Date: 20170428
  Serious: Yes (Other)
  Sender: FDA-Public Use
  Company Number: IT-JNJFOC-20160911481

PATIENT
  Age: 40 Year
  Sex: Female
  Weight: 80 kg

DRUGS (4)
  1. EN [Suspect]
     Active Substance: DELORAZEPAM
     Indication: INTENTIONAL SELF-INJURY
     Route: 048
     Dates: start: 20160911, end: 20160911
  2. DEPAKIN [Suspect]
     Active Substance: VALPROATE SODIUM
     Indication: INTENTIONAL SELF-INJURY
     Route: 048
     Dates: start: 20160911, end: 20160911
  3. RISPERDAL [Suspect]
     Active Substance: RISPERIDONE
     Indication: INTENTIONAL SELF-INJURY
     Dosage: STRENGTH - 4 MG; FILM COATED TABLET
     Route: 048
     Dates: start: 20160911, end: 20160911
  4. RISPERDAL [Suspect]
     Active Substance: RISPERIDONE
     Indication: INTENTIONAL SELF-INJURY
     Route: 048

REACTIONS (2)
  - Intentional overdose [Unknown]
  - Intentional self-injury [Unknown]

NARRATIVE: CASE EVENT DATE: 20160911
